FAERS Safety Report 5277550-1 (Version None)
Quarter: 2007Q1

REPORT INFORMATION
  Report Type: 
  Country: None (occurrence: None)
  Receive Date: 20061214
  Receipt Date: 20060602
  Transmission Date: 20070707
  Serious: No
  Sender: FDA-Public Use
  Company Number: 06P-163-0334933-00

PATIENT
  Age: 67 Year
  Sex: Male

DRUGS (6)
  1. TARKA [Suspect]
     Indication: BLOOD PRESSURE INCREASED
     Dates: start: 20060425, end: 20060427
  2. THYROID TAB [Suspect]
     Indication: HYPOTHYROIDISM
     Dosage: SEE IMAGE
     Route: 048
     Dates: start: 20060425, end: 20060101
  3. THYROID TAB [Suspect]
     Indication: HYPOTHYROIDISM
     Dosage: SEE IMAGE
     Route: 048
     Dates: start: 20060101
  4. DIOVAN [Concomitant]
  5. LUNERIN [Concomitant]
  6. VITAMINS [Concomitant]

REACTIONS (14)
  - BLOOD CREATININE INCREASED [None]
  - BLOOD PRESSURE DECREASED [None]
  - BLOOD PRESSURE FLUCTUATION [None]
  - BLOOD UREA INCREASED [None]
  - BLOOD UREA NITROGEN/CREATININE RATIO INCREASED [None]
  - C-REACTIVE PROTEIN INCREASED [None]
  - CHONDROCALCINOSIS PYROPHOSPHATE [None]
  - COLD SWEAT [None]
  - HYPERHIDROSIS [None]
  - NAUSEA [None]
  - OEDEMA PERIPHERAL [None]
  - PALLOR [None]
  - RHEUMATOID FACTOR INCREASED [None]
  - SLEEP APNOEA SYNDROME [None]
